FAERS Safety Report 10606768 (Version 1)
Quarter: 2014Q4

REPORT INFORMATION
  Report Type: Spontaneous
  Country: US (occurrence: None)
  Receive Date: 20141124
  Receipt Date: 20141124
  Transmission Date: 20150529
  Serious: Yes (Disabling)
  Sender: FDA-Public Use
  Company Number: None

PATIENT
  Age: 67 Year
  Sex: Female
  Weight: 68.04 kg

DRUGS (1)
  1. MONTELUKAST [Suspect]
     Active Substance: MONTELUKAST SODIUM
     Indication: ASTHMA
     Dosage: 1 TAB PER DAY ONCE DAILY TAKEN BY MOUTH
     Route: 048

REACTIONS (5)
  - Product odour abnormal [None]
  - Dyspnoea [None]
  - Product quality issue [None]
  - Nasal obstruction [None]
  - Product substitution issue [None]
